FAERS Safety Report 9463668 (Version 2)
Quarter: 2013Q3

REPORT INFORMATION
  Report Type: Spontaneous
  Country: US (occurrence: US)
  Receive Date: 20130819
  Receipt Date: 20130819
  Transmission Date: 20140515
  Serious: Yes (Other)
  Sender: FDA-Public Use
  Company Number: PHEH2013US016034

PATIENT
  Age: 42 Year
  Sex: Female
  Weight: 56.69 kg

DRUGS (5)
  1. GILENYA [Suspect]
     Indication: MULTIPLE SCLEROSIS
     Dosage: 0.5 MG, QD
     Route: 048
     Dates: start: 20130718, end: 20130722
  2. CALCIUM CARBONATE [Concomitant]
     Indication: HYPOCALCAEMIA
     Dosage: 1250 MG, QD
     Route: 048
  3. CALCIUM CARBONATE [Concomitant]
     Indication: OSTEOPENIA
  4. OXYBUTYNIN [Concomitant]
     Indication: URINARY INCONTINENCE
     Dosage: 5 MG, TID
     Route: 048
  5. VIT D [Concomitant]
     Indication: HYPOVITAMINOSIS
     Dosage: 1200 U, QD
     Route: 048

REACTIONS (1)
  - Visual field defect [Recovering/Resolving]
